FAERS Safety Report 9744869 (Version 1)
Quarter: 2013Q4

REPORT INFORMATION
  Report Type: Not Available
  Country: DE (occurrence: DE)
  Receive Date: 20131211
  Receipt Date: 20131211
  Transmission Date: 20140711
  Serious: Yes (Other)
  Sender: FDA-Public Use
  Company Number: DE-BEH-2013039347

PATIENT
  Sex: 0

DRUGS (1)
  1. RHOPHYLAC [Suspect]
     Indication: PROPHYLAXIS AGAINST RH ISOIMMUNISATION
     Route: 064

REACTIONS (2)
  - Thrombocytopenia neonatal [Unknown]
  - Foetal exposure timing unspecified [Unknown]
